FAERS Safety Report 6450893-1 (Version None)
Quarter: 2009Q4

REPORT INFORMATION
  Report Type: 
  Country: None (occurrence: None)
  Receive Date: 20091123
  Receipt Date: 20091110
  Transmission Date: 20100525
  Serious: Yes (Other)
  Sender: FDA-Public Use
  Company Number: US-PFIZER INC-2009296990

PATIENT
  Sex: Male
  Weight: 71 kg

DRUGS (1)
  1. CHANTIX [Suspect]
     Dosage: FREQUENCY: 2X/DAY,
     Dates: start: 20090101, end: 20091109

REACTIONS (4)
  - GAIT DISTURBANCE [None]
  - GRAND MAL CONVULSION [None]
  - MENTAL IMPAIRMENT [None]
  - MUSCLE SPASMS [None]
